FAERS Safety Report 10436035 (Version 2)
Quarter: 2014Q3

REPORT INFORMATION
  Report Type: Spontaneous
  Country: US (occurrence: US)
  Receive Date: 20140908
  Receipt Date: 20140922
  Transmission Date: 20150326
  Serious: Yes (Hospitalization)
  Sender: FDA-Public Use
  Company Number: US-RANBAXY-2014US-85095

PATIENT
  Sex: Female
  Weight: 53.9 kg

DRUGS (1)
  1. CLINDAMYCIN [Suspect]
     Active Substance: CLINDAMYCIN\CLINDAMYCIN PHOSPHATE
     Indication: TOOTH EXTRACTION
     Dosage: UNK
     Route: 065
     Dates: start: 201302

REACTIONS (4)
  - Cholelithiasis [Recovering/Resolving]
  - Jaundice cholestatic [Unknown]
  - Hepatic enzyme abnormal [Recovering/Resolving]
  - Autoimmune hepatitis [Unknown]

NARRATIVE: CASE EVENT DATE: 2013
